FAERS Safety Report 6629488-2 (Version None)
Quarter: 2010Q1

REPORT INFORMATION
  Report Type: 
  Country: None (occurrence: None)
  Receive Date: 20100311
  Receipt Date: 20090720
  Transmission Date: 20100710
  Serious: No
  Sender: FDA-Public Use
  Company Number: US-BIOGENIDEC-2009BI022605

PATIENT
  Age: 52 Year
  Sex: Male

DRUGS (2)
  1. AVONEX [Suspect]
     Indication: MULTIPLE SCLEROSIS
     Route: 030
     Dates: start: 19991001, end: 20060803
  2. AVONEX [Suspect]
     Route: 030
     Dates: start: 20090709

REACTIONS (2)
  - FAECES DISCOLOURED [None]
  - LIVER DISORDER [None]
